FAERS Safety Report 24611434 (Version 2)
Quarter: 2025Q1

REPORT INFORMATION
  Report Type: Spontaneous
  Country: HK (occurrence: HK)
  Receive Date: 20241113
  Receipt Date: 20250114
  Transmission Date: 20250408
  Serious: Yes (Death, Hospitalization, Other)
  Sender: IPCA
  Company Number: HK-IPCA LABORATORIES LIMITED-IPC-2024-HK-002646

PATIENT

DRUGS (2)
  1. HYDROXYCHLOROQUINE [Suspect]
     Active Substance: HYDROXYCHLOROQUINE
     Indication: Product used for unknown indication
     Route: 048
  2. CHLOROQUINE [Suspect]
     Active Substance: CHLOROQUINE
     Indication: Product used for unknown indication
     Route: 048

REACTIONS (12)
  - Shock [Fatal]
  - Circulatory collapse [Fatal]
  - Cardiac arrest [Fatal]
  - Suicide attempt [Fatal]
  - Torsade de pointes [Fatal]
  - Ventricular fibrillation [Fatal]
  - Hypokalaemia [Fatal]
  - Electrocardiogram QRS complex prolonged [Fatal]
  - Haemodynamic instability [Fatal]
  - Sinus tachycardia [Fatal]
  - Toxicity to various agents [Fatal]
  - Overdose [Fatal]
